FAERS Safety Report 7477590-8 (Version None)
Quarter: 2011Q2

REPORT INFORMATION
  Report Type: 
  Country: None (occurrence: None)
  Receive Date: 20110513
  Receipt Date: 20110503
  Transmission Date: 20111010
  Serious: Yes (Death)
  Sender: FDA-Public Use
  Company Number: DE-JNJFOC-20110500734

PATIENT
  Age: 81 Year
  Sex: Female
  Weight: 60.4 kg

DRUGS (5)
  1. POTASSIUM CHLORIDE [Concomitant]
     Route: 048
     Dates: start: 20100304
  2. RISPERDAL [Suspect]
     Indication: PRODUCT USED FOR UNKNOWN INDICATION
     Route: 048
     Dates: start: 20100304, end: 20100304
  3. OMEPRAZOLE [Concomitant]
     Route: 048
     Dates: start: 20100303
  4. ASPIRIN [Concomitant]
     Route: 048
     Dates: start: 20100303
  5. ENOXAPARIN SODIUM [Concomitant]
     Route: 058
     Dates: start: 20100303

REACTIONS (1)
  - DEATH [None]
